FAERS Safety Report 6727031-0 (Version None)
Quarter: 2010Q2

REPORT INFORMATION
  Report Type: 
  Country: None (occurrence: None)
  Receive Date: 20100517
  Receipt Date: 20100503
  Transmission Date: 20101027
  Serious: Yes (Hospitalization, Other)
  Sender: FDA-Public Use
  Company Number: US-BAYER-201021250NA

PATIENT
  Age: 39 Year
  Sex: Female
  Weight: 61 kg

DRUGS (5)
  1. YASMIN [Suspect]
     Indication: ORAL CONTRACEPTION
     Route: 048
     Dates: start: 19900101, end: 20030501
  2. YAZ [Suspect]
     Indication: ORAL CONTRACEPTION
     Route: 048
     Dates: start: 20070401, end: 20071201
  3. LIPITOR [Concomitant]
     Indication: BLOOD CHOLESTEROL INCREASED
     Dates: start: 20030101
  4. ANTIBIOTICS [Concomitant]
     Dosage: PERIODICALLY
  5. MOTRIN [Concomitant]
     Indication: PAIN MANAGEMENT

REACTIONS (2)
  - PULMONARY EMBOLISM [None]
  - THROMBOSIS [None]
